FAERS Safety Report 4558946-X (Version None)
Quarter: 2005Q1

REPORT INFORMATION
  Report Type: 
  Country: None (occurrence: None)
  Receive Date: 20050121
  Receipt Date: 20050119
  Transmission Date: 20050727
  Serious: Yes (Life-Threatening)
  Sender: FDA-Public Use
  Company Number: US-MERCK-0501USA03095

PATIENT
  Age: 64 Year
  Sex: Female

DRUGS (8)
  1. FOSAMAX [Suspect]
     Indication: NEOPLASM MALIGNANT
     Route: 048
  2. COUMADIN [Concomitant]
     Route: 065
  3. NEURONTIN [Concomitant]
     Route: 065
  4. DILANTIN [Concomitant]
     Route: 065
  5. DECADRON (DEXAMETHASONE ACETATE) [Concomitant]
     Route: 065
  6. DETROL [Concomitant]
     Route: 065
  7. [THERAPY UNSPECIFIED] [Concomitant]
     Route: 065
  8. VITAMINS (UNSPECIFIED) [Concomitant]
     Route: 065

REACTIONS (2)
  - CHEST PAIN [None]
  - DYSPNOEA [None]
